FAERS Safety Report 19105422 (Version 1)
Quarter: 2021Q2

REPORT INFORMATION
  Report Type: Report from Study
  Country: None (occurrence: US)
  Receive Date: 20210408
  Receipt Date: 20210408
  Transmission Date: 20210717
  Serious: Yes (Other)
  Sender: FDA-Public Use
  Company Number: US-ABBVIE-21K-163-3845522-00

PATIENT
  Age: 71 Year
  Sex: Male

DRUGS (2)
  1. HUMIRA [Suspect]
     Active Substance: ADALIMUMAB
     Indication: RHEUMATOID ARTHRITIS
     Route: 058
     Dates: start: 2006
  2. HUMIRA [Suspect]
     Active Substance: ADALIMUMAB
     Route: 058
     Dates: start: 20210331

REACTIONS (10)
  - Blindness [Not Recovered/Not Resolved]
  - Impaired healing [Unknown]
  - Skin ulcer [Unknown]
  - Neuropathic arthropathy [Not Recovered/Not Resolved]
  - Gait inability [Not Recovered/Not Resolved]
  - Rheumatoid arthritis [Unknown]
  - Foot deformity [Not Recovered/Not Resolved]
  - Nervousness [Unknown]
  - Infection susceptibility increased [Unknown]
  - Pain [Unknown]

NARRATIVE: CASE EVENT DATE: 202011
